FAERS Safety Report 11118631 (Version 1)
Quarter: 2015Q2

REPORT INFORMATION
  Report Type: Spontaneous
  Country: MX (occurrence: None)
  Receive Date: 20150515
  Receipt Date: 20150515
  Transmission Date: 20150821
  Serious: Yes (Hospitalization, Other)
  Sender: FDA-Public Use
  Company Number: None

PATIENT
  Age: 86 Year
  Sex: Male
  Weight: 75 kg

DRUGS (5)
  1. TARCEVA [Suspect]
     Active Substance: ERLOTINIB HYDROCHLORIDE
     Indication: NON-SMALL CELL LUNG CANCER
     Dosage: 1 PILL ONCE DAILY TAKEN BY MOUTH
     Route: 048
     Dates: start: 20150406, end: 20150503
  2. PROSCAR [Concomitant]
     Active Substance: FINASTERIDE
  3. HIZAR [Concomitant]
  4. PACEMAKER [Concomitant]
  5. LEXAPRO [Concomitant]
     Active Substance: ESCITALOPRAM OXALATE

REACTIONS (7)
  - Diarrhoea [None]
  - Haemoglobin decreased [None]
  - Dehydration [None]
  - Melaena [None]
  - Haematochezia [None]
  - Haematemesis [None]
  - Ulcer [None]

NARRATIVE: CASE EVENT DATE: 20150503
